FAERS Safety Report 6845369-3 (Version None)
Quarter: 2010Q3

REPORT INFORMATION
  Report Type: 
  Country: None (occurrence: None)
  Receive Date: 20100715
  Receipt Date: 20070816
  Transmission Date: 20110219
  Serious: No
  Sender: FDA-Public Use
  Company Number: US-PFIZER INC-2007070249

PATIENT
  Sex: Female
  Weight: 79.545 kg

DRUGS (15)
  1. CHANTIX [Suspect]
     Indication: SMOKING CESSATION THERAPY
     Dates: start: 20070805
  2. PLETAL [Concomitant]
  3. DIGITEK [Concomitant]
  4. PAROXETINE [Concomitant]
  5. PREMARIN [Concomitant]
  6. PRILOSEC [Concomitant]
  7. ASPIRIN [Concomitant]
  8. SYNTHROID [Concomitant]
  9. VALIUM [Concomitant]
  10. LORTAB [Concomitant]
  11. PLAVIX [Concomitant]
  12. ENALAPRIL MALEATE [Concomitant]
  13. LIPITOR [Concomitant]
  14. XOPENEX [Concomitant]
  15. OXYGEN [Concomitant]

REACTIONS (1)
  - PRURITUS GENERALISED [None]
